FAERS Safety Report 11176540 (Version 1)
Quarter: 2015Q2

REPORT INFORMATION
  Report Type: Spontaneous
  Country: IT (occurrence: IT)
  Receive Date: 20150610
  Receipt Date: 20150610
  Transmission Date: 20150821
  Serious: Yes (Other)
  Sender: FDA-Public Use
  Company Number: IT-ALEMBIC PHARMACEUTICALS LIMITED-2015SCAL000267

PATIENT

DRUGS (1)
  1. DULOXETINE HYDROCHLORIDE. [Suspect]
     Active Substance: DULOXETINE HYDROCHLORIDE
     Indication: PRODUCT USED FOR UNKNOWN INDICATION
     Dosage: 90 MG, QD
     Route: 064

REACTIONS (7)
  - Foetal exposure during pregnancy [Unknown]
  - Apgar score low [Unknown]
  - Hypotonia neonatal [Unknown]
  - Convulsion neonatal [Unknown]
  - Neonatal disorder [Unknown]
  - Neonatal respiratory distress syndrome [Unknown]
  - Feeling jittery [Unknown]
